FAERS Safety Report 9490787 (Version 1)
Quarter: 2013Q3

REPORT INFORMATION
  Report Type: Spontaneous
  Country: US (occurrence: None)
  Receive Date: 20130826
  Receipt Date: 20130826
  Transmission Date: 20140515
  Serious: Yes (Other)
  Sender: FDA-Public Use
  Company Number: ADR-2013-01459

PATIENT
  Sex: Female

DRUGS (2)
  1. BACLOFEN INTRATHECAL [Suspect]
     Route: 037
  2. DILAUDID [Suspect]
     Route: 037

REACTIONS (2)
  - Pain [None]
  - Musculoskeletal disorder [None]
